FAERS Safety Report 6225323-5 (Version None)
Quarter: 2009Q2

REPORT INFORMATION
  Report Type: 
  Country: None (occurrence: None)
  Receive Date: 20090612
  Receipt Date: 20090415
  Transmission Date: 20091009
  Serious: No
  Sender: FDA-Public Use
  Company Number: US-ABBOTT-09P-163-0568326-00

PATIENT
  Sex: Female
  Weight: 52.21 kg

DRUGS (4)
  1. HUMIRA [Suspect]
     Indication: RHEUMATOID ARTHRITIS
     Route: 058
     Dates: start: 20070101
  2. CRESTOR [Concomitant]
     Indication: BLOOD CHOLESTEROL INCREASED
  3. HORMONE PATCH [Concomitant]
     Indication: HORMONE REPLACEMENT THERAPY
  4. TEMAZEPAM [Concomitant]
     Indication: SLEEP DISORDER THERAPY

REACTIONS (1)
  - INJECTION SITE PAIN [None]
